FAERS Safety Report 15578649 (Version 1)
Quarter: 2018Q4

REPORT INFORMATION
  Report Type: Spontaneous
  Country: PH (occurrence: PH)
  Receive Date: 20181102
  Receipt Date: 20181102
  Transmission Date: 20190205
  Serious: Yes (Other)
  Sender: FDA-Public Use
  Company Number: PH-ALEMBIC PHARMACUETICALS LIMITED-2018SCAL000804

PATIENT

DRUGS (8)
  1. VANCOMYCIN [Concomitant]
     Active Substance: VANCOMYCIN
     Indication: PNEUMONIA
  2. LINEZOLID. [Suspect]
     Active Substance: LINEZOLID
     Indication: PNEUMONIA
  3. PIPERACILIN/TAZOBACTAM [Concomitant]
     Active Substance: PIPERACILLIN SODIUM\TAZOBACTAM SODIUM
     Indication: VASCULAR PSEUDOANEURYSM
     Dosage: UNK
  4. TRAMADOL. [Concomitant]
     Active Substance: TRAMADOL
     Indication: PNEUMONIA
  5. LINEZOLID. [Suspect]
     Active Substance: LINEZOLID
     Indication: VASCULAR PSEUDOANEURYSM
     Dosage: UNK
  6. VANCOMYCIN [Concomitant]
     Active Substance: VANCOMYCIN
     Indication: VASCULAR PSEUDOANEURYSM
     Dosage: UNK
  7. PIPERACILIN/TAZOBACTAM [Concomitant]
     Active Substance: PIPERACILLIN SODIUM\TAZOBACTAM SODIUM
     Indication: PNEUMONIA
  8. TRAMADOL. [Concomitant]
     Active Substance: TRAMADOL
     Indication: VASCULAR PSEUDOANEURYSM
     Dosage: UNK

REACTIONS (14)
  - Asthenia [Recovering/Resolving]
  - Tachycardia [Recovering/Resolving]
  - Hyperreflexia [Recovering/Resolving]
  - Pyrexia [Recovering/Resolving]
  - Agitation [Recovering/Resolving]
  - Chest pain [Recovering/Resolving]
  - Tremor [Recovering/Resolving]
  - Chills [Recovering/Resolving]
  - Rhabdomyolysis [Recovering/Resolving]
  - Jaundice [Recovering/Resolving]
  - Insomnia [Recovering/Resolving]
  - Diarrhoea [Recovering/Resolving]
  - Serotonin syndrome [Recovering/Resolving]
  - Hypertension [Recovering/Resolving]
